FAERS Safety Report 7949126-6 (Version None)
Quarter: 2011Q4

REPORT INFORMATION
  Report Type: 
  Country: None (occurrence: None)
  Receive Date: 20111129
  Receipt Date: 20111129
  Transmission Date: 20120403
  Serious: No
  Sender: FDA-Public Use
  Company Number: None

PATIENT
  Sex: Male
  Weight: 80.2867 kg

DRUGS (1)
  1. ALFUZOSIN HCL [Suspect]
     Indication: PROSTATIC DISORDER
     Dosage: 10 MG ONCE DAILY W/ MEALS
     Dates: start: 20111026, end: 20111117

REACTIONS (3)
  - PRODUCT SUBSTITUTION ISSUE [None]
  - MICTURITION URGENCY [None]
  - DRUG INEFFECTIVE [None]
